FAERS Safety Report 8573838-7 (Version None)
Quarter: 2012Q3

REPORT INFORMATION
  Report Type: 
  Country: None (occurrence: None)
  Receive Date: 20120806
  Receipt Date: 20110916
  Transmission Date: 20120928
  Serious: No
  Sender: FDA-Public Use
  Company Number: US-GLAXOSMITHKLINE-A0944969A

PATIENT
  Age: 74 Year
  Sex: Female

DRUGS (5)
  1. BLOOD PRESSURE MEDICATION [Concomitant]
  2. FLUTICASONE PROPIONATE [Suspect]
     Indication: CHRONIC OBSTRUCTIVE PULMONARY DISEASE
     Dosage: 1PUFF TWICE PER DAY
     Route: 055
  3. LANTUS [Concomitant]
     Route: 042
  4. SYNTHROID [Concomitant]
  5. VITAMIN TAB [Concomitant]

REACTIONS (1)
  - DYSPNOEA EXERTIONAL [None]
